FAERS Safety Report 16694029 (Version 1)
Quarter: 2019Q3

REPORT INFORMATION
  Report Type: Spontaneous
  Country: CA (occurrence: CA)
  Receive Date: 20190812
  Receipt Date: 20190812
  Transmission Date: 20191004
  Serious: Yes (Other)
  Sender: FDA-Public Use
  Company Number: CA-GLAXOSMITHKLINE-CA2019AMR145521

PATIENT
  Age: 37 Year
  Sex: Male

DRUGS (7)
  1. VALTREX [Suspect]
     Active Substance: VALACYCLOVIR HYDROCHLORIDE
     Indication: PRODUCT USED FOR UNKNOWN INDICATION
     Dosage: UNK
  2. DOVONEX [Concomitant]
     Active Substance: CALCIPOTRIENE
     Indication: PRODUCT USED FOR UNKNOWN INDICATION
     Dosage: UNK
  3. BETAMETHASONE DIPROPIONATE + CALCIPOTRIOL [Concomitant]
     Indication: PRODUCT USED FOR UNKNOWN INDICATION
     Dosage: UNK
  4. JARDIANCE [Concomitant]
     Active Substance: EMPAGLIFLOZIN
     Indication: PRODUCT USED FOR UNKNOWN INDICATION
     Dosage: UNK
  5. JANUMET (METFORMIN HYDROCHLORIDE/SITAGLIPTIN PHOSPHATE MONOHYDRATE) [Concomitant]
     Indication: PRODUCT USED FOR UNKNOWN INDICATION
     Dosage: UNK
  6. CLOBETASOL [Concomitant]
     Active Substance: CLOBETASOL
     Indication: PRODUCT USED FOR UNKNOWN INDICATION
     Dosage: UNK
  7. COSENTYX [Suspect]
     Active Substance: SECUKINUMAB
     Indication: PSORIASIS
     Dosage: 300.0 MG, Z(1 EVERY 1)
     Route: 058

REACTIONS (6)
  - Blood pressure increased [Unknown]
  - Facial asymmetry [Unknown]
  - Facial paralysis [Unknown]
  - Hypoaesthesia [Unknown]
  - Lip disorder [Unknown]
  - Psoriasis [Unknown]
